FAERS Safety Report 13928272 (Version 1)
Quarter: 2017Q3

REPORT INFORMATION
  Report Type: Spontaneous
  Country: US (occurrence: None)
  Receive Date: 20170831
  Receipt Date: 20170831
  Transmission Date: 20171127
  Serious: No
  Sender: FDA-Public Use
  Company Number: None

PATIENT
  Age: 59 Year
  Sex: Female

DRUGS (1)
  1. STIVARGA [Suspect]
     Active Substance: REGORAFENIB
     Indication: COLON CANCER
     Route: 048
     Dates: start: 20170322, end: 20170731

REACTIONS (4)
  - Pain in extremity [None]
  - Cough [None]
  - Dry eye [None]
  - Productive cough [None]

NARRATIVE: CASE EVENT DATE: 20170828
